FAERS Safety Report 10051645 (Version 1)
Quarter: 2014Q2

REPORT INFORMATION
  Report Type: Spontaneous
  Country: GB (occurrence: GB)
  Receive Date: 20140401
  Receipt Date: 20140401
  Transmission Date: 20141212
  Serious: Yes (Hospitalization)
  Sender: FDA-Public Use
  Company Number: GB-MYLANLABS-2014S1006620

PATIENT
  Age: 16 Year
  Sex: Female

DRUGS (20)
  1. FELODIPINE [Suspect]
     Indication: OVERDOSE
     Dosage: MODIFIED RELEASE TABLETS (3.3 MG/KG)
     Route: 048
  2. FELODIPINE [Suspect]
     Indication: OFF LABEL USE
     Dosage: MODIFIED RELEASE TABLETS (3.3 MG/KG)
     Route: 048
  3. DOXAZOSIN [Suspect]
     Indication: OVERDOSE
     Dosage: (0.33 MG/KG)
     Route: 048
  4. DOXAZOSIN [Suspect]
     Indication: OFF LABEL USE
     Dosage: (0.33 MG/KG)
     Route: 048
  5. CINNARIZINE [Suspect]
     Indication: OVERDOSE
     Dosage: (2.4 MG/KG)
     Route: 048
  6. CINNARIZINE [Suspect]
     Indication: OFF LABEL USE
     Dosage: (2.4 MG/KG)
     Route: 048
  7. BENDROFLUMETHIAZIDE [Suspect]
     Indication: OVERDOSE
     Dosage: (0.81 MG/KG)
     Route: 048
  8. FLUCLOXACILLIN [Suspect]
     Indication: OVERDOSE
     Dosage: (41 MG/KG)
     Route: 048
  9. FLUCLOXACILLIN [Suspect]
     Indication: OFF LABEL USE
     Dosage: (41 MG/KG)
     Route: 048
  10. SODIUM CHLORIDE [Suspect]
     Indication: HYPOTENSION
     Dosage: 2500ML OF 0.9%; THEN 1000ML OF 0.9%
     Route: 065
  11. SODIUM CHLORIDE [Suspect]
     Indication: HYPOTENSION
     Dosage: 1000ML OF 0.9%
     Route: 065
  12. GLUCAGON [Concomitant]
     Indication: HYPOTENSION
     Dosage: 10MG; THEN 5MG
     Route: 065
  13. GLUCAGON [Concomitant]
     Indication: HYPOTENSION
     Dosage: 5MG
     Route: 065
  14. CALCIUM CHLORIDE [Concomitant]
     Indication: HYPOTENSION
     Dosage: 20ML OF 10%; THEN 10ML OF 10%
     Route: 065
  15. CALCIUM CHLORIDE [Concomitant]
     Indication: HYPOTENSION
     Dosage: 10ML OF 10%
     Route: 065
  16. EPINEPHRINE [Concomitant]
     Indication: HYPOTENSION
     Dosage: 15 MICROG; THEN REPEATED BOLUSES OF 5-10 MICROG
     Route: 042
  17. EPINEPHRINE [Concomitant]
     Indication: HYPOTENSION
     Dosage: REPEATED BOLUSES OF 5-10 MICROG; THEN 2MG
     Route: 042
  18. EPINEPHRINE [Concomitant]
     Indication: HYPOTENSION
     Dosage: 2MG
     Route: 042
  19. KETAMINE [Concomitant]
     Indication: INDUCTION OF ANAESTHESIA
     Route: 065
  20. SUXAMETHONIUM CHLORIDE [Concomitant]
     Indication: INDUCTION OF ANAESTHESIA
     Route: 065

REACTIONS (6)
  - Overdose [Recovered/Resolved]
  - Hypotension [Recovered/Resolved]
  - Sinus tachycardia [Recovered/Resolved]
  - Cardiovascular insufficiency [Recovered/Resolved]
  - Toxicity to various agents [Recovered/Resolved]
  - Polyuria [Recovered/Resolved]
